FAERS Safety Report 9393377 (Version 1)
Quarter: 2013Q3

REPORT INFORMATION
  Report Type: Spontaneous
  Country: US (occurrence: None)
  Receive Date: 20130709
  Receipt Date: 20130709
  Transmission Date: 20140515
  Serious: Yes (Death)
  Sender: FDA-Public Use
  Company Number: None

PATIENT
  Age: 60 Year
  Sex: Female
  Weight: 84.82 kg

DRUGS (8)
  1. EFFEXOR [Suspect]
  2. IMIPRAMINE [Suspect]
     Indication: DEPRESSION
     Dosage: 2 TABLETS  EVERY BEDTIME BY MOUTH
     Route: 048
     Dates: start: 20130505, end: 20130605
  3. IMIPRAMINE [Suspect]
     Indication: SUICIDAL IDEATION
     Dosage: 2 TABLETS  EVERY BEDTIME BY MOUTH
     Route: 048
     Dates: start: 20130505, end: 20130605
  4. MAXZIDE [Concomitant]
  5. VICODIN [Concomitant]
  6. XANEX [Concomitant]
  7. ROBAXIN [Concomitant]
  8. EXCEDRIN [Concomitant]

REACTIONS (3)
  - Completed suicide [None]
  - Confusional state [None]
  - Depression [None]
